FAERS Safety Report 20855292 (Version 1)
Quarter: 2022Q2

REPORT INFORMATION
  Report Type: Spontaneous
  Country: US (occurrence: US)
  Receive Date: 20220520
  Receipt Date: 20220520
  Transmission Date: 20220720
  Serious: No
  Sender: FDA-Public Use
  Company Number: US-PFIZER INC-202200352330

PATIENT
  Age: 78 Year
  Sex: Male
  Weight: 124.72 kg

DRUGS (3)
  1. DOXAZOSIN MESYLATE [Suspect]
     Active Substance: DOXAZOSIN MESYLATE
     Indication: Benign prostatic hyperplasia
     Dosage: UNK
  2. FINASTERIDE [Concomitant]
     Active Substance: FINASTERIDE
     Indication: Benign prostatic hyperplasia
     Dosage: UNK
  3. OXYBUTYNIN [Concomitant]
     Active Substance: OXYBUTYNIN
     Indication: Micturition urgency
     Dosage: UNK

REACTIONS (5)
  - Nocturia [Unknown]
  - Micturition urgency [Unknown]
  - Incontinence [Unknown]
  - Benign prostatic hyperplasia [Unknown]
  - Irritability [Unknown]
